FAERS Safety Report 9355890 (Version 1)
Quarter: 2013Q2

REPORT INFORMATION
  Report Type: Report from Study
  Country: TR (occurrence: TR)
  Receive Date: 20130619
  Receipt Date: 20130619
  Transmission Date: 20140414
  Serious: Yes (Other)
  Sender: FDA-Public Use
  Company Number: TR-SANOFI-AVENTIS-2013SA061358

PATIENT
  Sex: 0

DRUGS (4)
  1. ENOXAPARIN SODIUM [Suspect]
     Indication: PROPHYLAXIS
     Route: 065
  2. DOCETAXEL [Suspect]
     Indication: NON-SMALL CELL LUNG CANCER
     Route: 065
  3. CISPLATIN [Suspect]
     Indication: NON-SMALL CELL LUNG CANCER
     Route: 065
  4. THERAPEUTIC RADIOPHARMACEUTICALS [Suspect]
     Indication: NON-SMALL CELL LUNG CANCER
     Dosage: TOTAL OF 60 GY RT IN 30 FRACTIONS (2GY PER DAY) OVER 6 WEEKS
     Route: 065

REACTIONS (1)
  - Neutropenia [Unknown]
